FAERS Safety Report 4503268-6 (Version None)
Quarter: 2004Q4

REPORT INFORMATION
  Report Type: 
  Country: None (occurrence: None)
  Receive Date: 20041112
  Receipt Date: 20041102
  Transmission Date: 20050328
  Serious: Yes (Hospitalization)
  Sender: FDA-Public Use
  Company Number: 2004042715

PATIENT
  Age: 50 Year
  Sex: Male

DRUGS (1)
  1. SULPERAZON (CEFOPERAZONE, SULBACTAM) [Suspect]
     Indication: PYELONEPHRITIS CHRONIC
     Dosage: 1 GRAM (1 GRAM, 1 IN 1 D) INTRAVENOUS
     Route: 042
     Dates: start: 20040501, end: 20040621

REACTIONS (1)
  - ANAPHYLACTIC SHOCK [None]
